FAERS Safety Report 14313298 (Version 2)
Quarter: 2021Q1

REPORT INFORMATION
  Report Type: Spontaneous
  Country: US (occurrence: US)
  Receive Date: 20171221
  Receipt Date: 20210122
  Transmission Date: 20210419
  Serious: Yes (Other)
  Sender: FDA-Public Use
  Company Number: US-BAYER-2017-242544

PATIENT
  Sex: Female

DRUGS (1)
  1. KYLEENA [Suspect]
     Active Substance: LEVONORGESTREL
     Indication: CONTRACEPTION
     Dosage: 17.5 MCG/24HR, CONT
     Route: 015

REACTIONS (6)
  - Menorrhagia [None]
  - Drug interaction [None]
  - Influenza like illness [None]
  - Pregnancy with contraceptive device [None]
  - Drug ineffective [None]
  - Device dislocation [None]
